FAERS Safety Report 4562960-8 (Version None)
Quarter: 2005Q1

REPORT INFORMATION
  Report Type: 
  Country: None (occurrence: None)
  Receive Date: 20050121
  Receipt Date: 20041227
  Transmission Date: 20050727
  Serious: Yes (Life-Threatening, Other)
  Sender: FDA-Public Use
  Company Number: JP_041004921

PATIENT
  Age: 62 Year
  Sex: Male
  Weight: 47 kg

DRUGS (6)
  1. GEMZAR [Suspect]
     Indication: PANCREATIC CARCINOMA STAGE IV
     Dosage: 800 MG/1 WEEK
     Route: 042
     Dates: start: 20030729, end: 20030818
  2. BERIZYM [Concomitant]
  3. GASMOTIN (MOSAPRIDE CITRATE) [Concomitant]
  4. AMOBAN          (ZOPICLONE) [Concomitant]
  5. NAUZELIN           (DOMPERIDONE) [Concomitant]
  6. MECOBALAMIN [Concomitant]

REACTIONS (15)
  - ACUTE RESPIRATORY DISTRESS SYNDROME [None]
  - BLOOD BICARBONATE INCREASED [None]
  - BLOOD PH DECREASED [None]
  - BODY TEMPERATURE INCREASED [None]
  - BONE MARROW DEPRESSION [None]
  - C-REACTIVE PROTEIN INCREASED [None]
  - CHEST X-RAY ABNORMAL [None]
  - DYSPNOEA [None]
  - EFFUSION [None]
  - LUNG DISORDER [None]
  - PCO2 INCREASED [None]
  - PERITONITIS BACTERIAL [None]
  - PO2 DECREASED [None]
  - PRODUCTIVE COUGH [None]
  - PYREXIA [None]
